FAERS Safety Report 20249529 (Version 1)
Quarter: 2021Q4

REPORT INFORMATION
  Report Type: Spontaneous
  Country: DE (occurrence: DE)
  Receive Date: 20211229
  Receipt Date: 20211229
  Transmission Date: 20220303
  Serious: Yes (Hospitalization)
  Sender: FDA-Public Use
  Company Number: DE-ADRED-07637-01

PATIENT
  Age: 60 Year
  Sex: Male
  Weight: 86 kg

DRUGS (14)
  1. DULOXETINE [Suspect]
     Active Substance: DULOXETINE
     Dosage: 30 MILLIGRAM DAILY; 30 MG, 1-0-0-0,
     Route: 048
  2. DULOXETINE [Suspect]
     Active Substance: DULOXETINE
     Dosage: 60 MILLIGRAM DAILY; 60 MG, 1-0-0-0,
     Route: 048
  3. GINKGO [Suspect]
     Active Substance: GINKGO
     Route: 048
  4. LITHIUM CARBONATE [Suspect]
     Active Substance: LITHIUM CARBONATE
     Dosage: 800 MILLIGRAM DAILY; 400 MG, 1-0-1-0,
     Route: 048
  5. OMEPRAZOLE [Concomitant]
     Active Substance: OMEPRAZOLE
     Dosage: 40 MILLIGRAM DAILY; 40 MG, 1-0-0-0,
     Route: 048
  6. EDOXABAN [Concomitant]
     Active Substance: EDOXABAN
     Dosage: 600 MILLIGRAM DAILY; 60 MG, 1-0-0-0,
     Route: 048
  7. TORSEMIDE [Concomitant]
     Active Substance: TORSEMIDE
     Dosage: 10 MILLIGRAM DAILY; 10 MG, 1-0-0-0,
     Route: 048
  8. ATORVASTATIN [Concomitant]
     Active Substance: ATORVASTATIN
     Dosage: 40 MILLIGRAM DAILY; 40 MG, 0-0-0-1,
     Route: 048
  9. AZATHIOPRINE [Concomitant]
     Active Substance: AZATHIOPRINE
     Dosage: 100 MILLIGRAM DAILY; 50 MG, 1-0-1-0,
     Route: 048
  10. FENTANYL [Concomitant]
     Active Substance: FENTANYL
     Dosage: 0.05 MG / H, ACCORDING TO THE SCHEME
     Route: 062
  11. PREGABALIN [Concomitant]
     Active Substance: PREGABALIN
     Dosage: 25 MILLIGRAM DAILY; 25 MG, 1-0-0-0,
     Route: 048
  12. PREGABALIN [Concomitant]
     Active Substance: PREGABALIN
     Dosage: 50 MILLIGRAM DAILY; 50 MG, 0-0-1-0,
     Route: 048
  13. CHOLECALCIFEROL [Concomitant]
     Active Substance: CHOLECALCIFEROL
     Dosage: 20000 IE, ACCORDING TO THE SCHEME,
     Route: 048
  14. DENOSUMAB [Concomitant]
     Active Substance: DENOSUMAB
     Dosage: 60 MILLIGRAM DAILY; 60 MG, 1-0-0-0, PRE-FILLED SYRINGES
     Route: 058

REACTIONS (6)
  - Decreased appetite [Unknown]
  - Insomnia [Unknown]
  - Depressed mood [Unknown]
  - Apathy [Unknown]
  - Anxiety [Unknown]
  - Nervousness [Unknown]
